FAERS Safety Report 19927206 (Version 1)
Quarter: 2021Q4

REPORT INFORMATION
  Report Type: Spontaneous
  Country: BR (occurrence: BR)
  Receive Date: 20211006
  Receipt Date: 20211006
  Transmission Date: 20220303
  Serious: Yes (Death, Hospitalization, Other)
  Sender: FDA-Public Use
  Company Number: BR-009507513-2110BRA000233

PATIENT
  Age: 38 Year
  Sex: Male

DRUGS (2)
  1. TEMODAL [Suspect]
     Active Substance: TEMOZOLOMIDE
     Dosage: 100 MILLIGRAM
  2. TEMODAL [Suspect]
     Active Substance: TEMOZOLOMIDE
     Dosage: 250 MILLIGRAM

REACTIONS (4)
  - Adverse event [Fatal]
  - Adverse event [Unknown]
  - Pneumonia [Unknown]
  - Immune system disorder [Unknown]

NARRATIVE: CASE EVENT DATE: 20210928
